FAERS Safety Report 5036648-3 (Version None)
Quarter: 2006Q2

REPORT INFORMATION
  Report Type: 
  Country: None (occurrence: None)
  Receive Date: 20060623
  Receipt Date: 20060613
  Transmission Date: 20061013
  Serious: Yes (Life-Threatening, Hospitalization, Other)
  Sender: FDA-Public Use
  Company Number: 2006070049

PATIENT
  Age: 54 Year
  Sex: Male
  Weight: 105.2345 kg

DRUGS (4)
  1. LYRICA [Suspect]
     Indication: SCIATICA
     Dosage: 150 MG (75 MG, 1 IN 1 D), ORAL
     Route: 048
     Dates: start: 20050917, end: 20050920
  2. NEURONTIN [Suspect]
     Indication: SCIATICA
     Dosage: 1800 MG (600 MG, 3 IN 1 D), ORAL
     Route: 048
     Dates: start: 20050715, end: 20050916
  3. ADVIL [Concomitant]
  4. MOTRIN [Concomitant]

REACTIONS (2)
  - CORONARY ARTERY STENOSIS [None]
  - MYOCARDIAL INFARCTION [None]
